FAERS Safety Report 5815160-5 (Version None)
Quarter: 2008Q3

REPORT INFORMATION
  Report Type: 
  Country: None (occurrence: None)
  Receive Date: 20080718
  Receipt Date: 20080708
  Transmission Date: 20090109
  Serious: Yes (Other)
  Sender: FDA-Public Use
  Company Number: US-JNJFOC-20080703844

PATIENT
  Age: 53 Year
  Sex: Female

DRUGS (5)
  1. REMICADE [Suspect]
     Indication: DRUG USE FOR UNKNOWN INDICATION
     Route: 042
  2. HYDROXYCHLOROQUINE SULFATE [Concomitant]
  3. LEFLUNOMIDE [Concomitant]
  4. METHOTREXATE [Concomitant]
  5. PREDNISONE TAB [Concomitant]

REACTIONS (4)
  - INTERSTITIAL LUNG DISEASE [None]
  - PRECANCEROUS CELLS PRESENT [None]
  - PULMONARY GRANULOMA [None]
  - TUBERCULOSIS [None]
